FAERS Safety Report 4873858-X (Version None)
Quarter: 2006Q1

REPORT INFORMATION
  Report Type: 
  Country: None (occurrence: None)
  Receive Date: 20060104
  Receipt Date: 20051207
  Transmission Date: 20060701
  Serious: Yes (Other)
  Sender: FDA-Public Use
  Company Number: US200512001853

PATIENT
  Age: 11 Year
  Sex: Male

DRUGS (2)
  1. STRATTERA [Suspect]
     Dosage: 60 MG
     Dates: start: 20041001
  2. CONCERTA [Concomitant]

REACTIONS (2)
  - HEART RATE INCREASED [None]
  - SYNCOPE [None]
